FAERS Safety Report 24445417 (Version 2)
Quarter: 2024Q4

REPORT INFORMATION
  Report Type: Spontaneous
  Country: US (occurrence: US)
  Receive Date: 20241016
  Receipt Date: 20241104
  Transmission Date: 20250115
  Serious: Yes (Death, Hospitalization)
  Sender: TEVA
  Company Number: US-TEVA-VS-3252973

PATIENT
  Age: 76 Year
  Sex: Male

DRUGS (4)
  1. PREDNISONE [Suspect]
     Active Substance: PREDNISONE
     Indication: Immune-mediated lung disease
     Route: 065
  2. METHYLPREDNISOLONE [Suspect]
     Active Substance: METHYLPREDNISOLONE
     Indication: Immune-mediated lung disease
     Route: 042
  3. TOCILIZUMAB [Suspect]
     Active Substance: TOCILIZUMAB
     Indication: Immune-mediated lung disease
     Dosage: TWO DOSES
     Route: 065
  4. DURVALUMAB [Suspect]
     Active Substance: DURVALUMAB
     Indication: Adenocarcinoma
     Route: 065

REACTIONS (2)
  - Immune-mediated lung disease [Fatal]
  - Drug ineffective [Fatal]
